FAERS Safety Report 6201325-X (Version None)
Quarter: 2009Q2

REPORT INFORMATION
  Report Type: 
  Country: None (occurrence: None)
  Receive Date: 20090526
  Receipt Date: 20090515
  Transmission Date: 20091009
  Serious: Yes (Other)
  Sender: FDA-Public Use
  Company Number: PHEH2009US04997

PATIENT
  Sex: Female

DRUGS (2)
  1. GLEEVEC [Suspect]
     Dosage: 400 MG, QD
     Route: 048
     Dates: start: 20081126
  2. VISUDYNE [Suspect]
     Dosage: UNK

REACTIONS (3)
  - BLINDNESS [None]
  - DRUG INTERACTION [None]
  - SURGERY [None]
